FAERS Safety Report 17978293 (Version 1)
Quarter: 2020Q3

REPORT INFORMATION
  Report Type: Spontaneous
  Country: BG (occurrence: BG)
  Receive Date: 20200703
  Receipt Date: 20200703
  Transmission Date: 20201103
  Serious: Yes (Hospitalization, Other)
  Sender: FDA-Public Use
  Company Number: BG-BAUSCH-BL-2020-018531

PATIENT
  Age: 10 Year
  Sex: Male

DRUGS (4)
  1. KLACID [Suspect]
     Active Substance: CLARITHROMYCIN
     Indication: LYMPHADENITIS
     Route: 065
  2. ZINNAT [Suspect]
     Active Substance: CEFUROXIME
     Indication: LYMPHADENITIS
     Route: 065
  3. DEXAMETHASONE. [Suspect]
     Active Substance: DEXAMETHASONE
     Indication: HAEMOPHAGOCYTIC LYMPHOHISTIOCYTOSIS
     Route: 065
  4. METHYLPREDNISOLONE. [Suspect]
     Active Substance: METHYLPREDNISOLONE
     Indication: HAEMOPHAGOCYTIC LYMPHOHISTIOCYTOSIS
     Route: 042

REACTIONS (15)
  - Hepatosplenomegaly [Recovering/Resolving]
  - Urticaria [Recovering/Resolving]
  - Swelling of eyelid [Recovering/Resolving]
  - Swelling face [Recovering/Resolving]
  - Ear swelling [Recovering/Resolving]
  - Lymphadenopathy [Recovering/Resolving]
  - Inflammation [Recovering/Resolving]
  - Rash [Recovering/Resolving]
  - Rash pruritic [Recovering/Resolving]
  - Drug hypersensitivity [Unknown]
  - Pyrexia [Recovering/Resolving]
  - Rash macular [Recovering/Resolving]
  - Peripheral swelling [Recovering/Resolving]
  - Off label use [Unknown]
  - Haemophagocytic lymphohistiocytosis [Recovering/Resolving]
